FAERS Safety Report 4593901-5 (Version None)
Quarter: 2005Q1

REPORT INFORMATION
  Report Type: 
  Country: None (occurrence: None)
  Receive Date: 20050218
  Receipt Date: 20050203
  Transmission Date: 20050727
  Serious: Yes (Other)
  Sender: FDA-Public Use
  Company Number: 601820

PATIENT
  Age: 7 Year
  Sex: Male

DRUGS (3)
  1. MONARC-M [Suspect]
     Indication: HAEMOPHILIA
     Dosage: UNK
     Dates: start: 19880101, end: 19930101
  2. HEMOFIL M [Suspect]
     Indication: HAEMOPHILIA
     Dosage: INTRAVENOUS
     Route: 042
     Dates: start: 19930501
  3. MONOCLATE-P [Suspect]
     Indication: HAEMOPHILIA
     Dosage: UNK
     Route: 065
     Dates: start: 19930701

REACTIONS (7)
  - ANTIBODY TEST POSITIVE [None]
  - BRONCHOSPASM [None]
  - HAEMORRHAGE [None]
  - INJECTION SITE URTICARIA [None]
  - SOFT TISSUE HAEMORRHAGE [None]
  - THERAPY NON-RESPONDER [None]
  - URTICARIA GENERALISED [None]
